FAERS Safety Report 11082689 (Version 1)
Quarter: 2015Q2

REPORT INFORMATION
  Report Type: Report from Study
  Country: US (occurrence: US)
  Receive Date: 20150501
  Receipt Date: 20150501
  Transmission Date: 20150821
  Serious: No
  Sender: FDA-Public Use
  Company Number: US-ABBVIE-14P-163-1253794-00

PATIENT
  Age: 65 Year
  Sex: Male
  Weight: 63.56 kg

DRUGS (13)
  1. ANASTROZOLE. [Suspect]
     Active Substance: ANASTROZOLE
     Indication: BLOOD OESTROGEN INCREASED
     Route: 048
     Dates: start: 2014, end: 2014
  2. ANDROGEL [Suspect]
     Active Substance: TESTOSTERONE
     Indication: SECONDARY HYPOGONADISM
     Route: 061
     Dates: start: 201206, end: 201212
  3. IBUPROFEN. [Concomitant]
     Active Substance: IBUPROFEN
     Indication: PAIN
  4. ANDROGEL [Suspect]
     Active Substance: TESTOSTERONE
     Dosage: 6 PUMPS DAILY
     Route: 061
     Dates: start: 201309
  5. ZINC [Concomitant]
     Active Substance: ZINC\ZINC CHLORIDE
     Indication: TINNITUS
  6. TYLENOL [Concomitant]
     Active Substance: ACETAMINOPHEN
     Indication: PRODUCT USED FOR UNKNOWN INDICATION
  7. ANDROGEL [Suspect]
     Active Substance: TESTOSTERONE
     Indication: SECONDARY HYPOGONADISM
     Route: 061
     Dates: start: 201203, end: 201206
  8. FOLIC ACID. [Concomitant]
     Active Substance: FOLIC ACID
     Indication: PRODUCT USED FOR UNKNOWN INDICATION
  9. ANDROGEL [Suspect]
     Active Substance: TESTOSTERONE
     Dosage: 4 PUMPS
     Route: 061
     Dates: start: 201307, end: 201309
  10. MULTIVITAMIN [Concomitant]
     Active Substance: VITAMINS
     Indication: PRODUCT USED FOR UNKNOWN INDICATION
     Route: 048
  11. ANASTROZOLE. [Suspect]
     Active Substance: ANASTROZOLE
     Route: 048
     Dates: start: 2014, end: 201406
  12. VITAMIN D [Concomitant]
     Active Substance: CHOLECALCIFEROL
     Indication: PRODUCT USED FOR UNKNOWN INDICATION
  13. METAMUCIL [Concomitant]
     Active Substance: PLANTAGO SEED
     Indication: SUPPLEMENTATION THERAPY
     Route: 048

REACTIONS (8)
  - Joint swelling [Recovering/Resolving]
  - Peripheral swelling [Recovering/Resolving]
  - Prostatic specific antigen increased [Not Recovered/Not Resolved]
  - Dizziness [Recovered/Resolved]
  - Blood oestrogen increased [Recovering/Resolving]
  - Spider vein [Not Recovered/Not Resolved]
  - Headache [Recovered/Resolved]
  - Blood testosterone decreased [Recovered/Resolved]

NARRATIVE: CASE EVENT DATE: 201207
